FAERS Safety Report 4741772-6 (Version None)
Quarter: 2005Q3

REPORT INFORMATION
  Report Type: 
  Country: None (occurrence: None)
  Receive Date: 20050804
  Receipt Date: 20050526
  Transmission Date: 20060218
  Serious: No
  Sender: FDA-Public Use
  Company Number: WAES 0505USA03230

PATIENT
  Sex: Female

DRUGS (3)
  1. EMEND [Suspect]
     Indication: NAUSEA
     Dosage: SEE IMAGE
     Route: 048
  2. EMEND [Suspect]
     Indication: NAUSEA
     Dosage: SEE IMAGE
     Route: 048
  3. PALONOSETRON HYDROCHLORIDE [Concomitant]

REACTIONS (1)
  - DIZZINESS [None]
